FAERS Safety Report 6272540-4 (Version None)
Quarter: 2009Q3

REPORT INFORMATION
  Report Type: 
  Country: None (occurrence: None)
  Receive Date: 20090717
  Receipt Date: 20090708
  Transmission Date: 20100115
  Serious: Yes (Life-Threatening, Hospitalization, Other)
  Sender: FDA-Public Use
  Company Number: PHHY2008CA19394

PATIENT
  Sex: Female
  Weight: 60.3 kg

DRUGS (5)
  1. SANDOSTATIN LAR [Suspect]
     Indication: CARCINOID TUMOUR OF THE PANCREAS
     Dosage: 80 MG EVERY TWO WEEKS
     Route: 030
     Dates: start: 20080401
  2. SANDOSTATIN LAR [Suspect]
     Dosage: 60 MG EVERY 2 WEEKS
     Route: 030
     Dates: start: 20080502
  3. LEVOTHYROXINE SODIUM [Concomitant]
  4. VITAMIN B-12 [Concomitant]
  5. MULTI-VIT [Concomitant]

REACTIONS (10)
  - ASTHENIA [None]
  - CARDIAC FAILURE CONGESTIVE [None]
  - CARDIAC OPERATION [None]
  - DYSPNOEA [None]
  - FATIGUE [None]
  - GENERAL PHYSICAL HEALTH DETERIORATION [None]
  - GENERALISED OEDEMA [None]
  - MALIGNANT NEOPLASM PROGRESSION [None]
  - PARACENTESIS [None]
  - WAIST CIRCUMFERENCE INCREASED [None]
